FAERS Safety Report 13368095 (Version 1)
Quarter: 2017Q1

REPORT INFORMATION
  Report Type: Report from Study
  Country: NL (occurrence: NL)
  Receive Date: 20170324
  Receipt Date: 20170324
  Transmission Date: 20170429
  Serious: Yes (Life-Threatening, Hospitalization)
  Sender: FDA-Public Use
  Company Number: NL-OTSUKA-2017_006756

PATIENT
  Age: 69 Year
  Sex: Male
  Weight: 88 kg

DRUGS (6)
  1. DECITABINE. [Suspect]
     Active Substance: DECITABINE
     Indication: ACUTE MYELOID LEUKAEMIA
     Dosage: 42 MG, 1 IN 1 DAY CYCLE 1
     Route: 042
     Dates: start: 20161006
  2. DECITABINE. [Suspect]
     Active Substance: DECITABINE
     Dosage: UNK
     Route: 065
     Dates: start: 20161219
  3. FUNGIZONE [Concomitant]
     Active Substance: AMPHOTERICIN B
     Indication: INFECTION PROPHYLAXIS
     Dosage: 500 MG, 4 IN 1 DAY
     Route: 048
     Dates: start: 20161005
  4. CIPROFLOXACIN. [Concomitant]
     Active Substance: CIPROFLOXACIN
     Indication: INFECTION PROPHYLAXIS
     Dosage: 500 MG, 2 IN 1 DAY
     Route: 048
     Dates: start: 20161005
  5. PREDNISONE. [Concomitant]
     Active Substance: PREDNISONE
     Indication: ORGANISING PNEUMONIA
     Dosage: UNK
     Route: 042
     Dates: start: 20161119
  6. PREDNISOLONE. [Concomitant]
     Active Substance: PREDNISOLONE
     Indication: CHRONIC OBSTRUCTIVE PULMONARY DISEASE
     Dosage: 10 MG, 1 IN 1 DAY
     Route: 048
     Dates: start: 20161005

REACTIONS (1)
  - Pneumonitis [Recovered/Resolved]

NARRATIVE: CASE EVENT DATE: 20161025
